FAERS Safety Report 5829192-4 (Version None)
Quarter: 2008Q2

REPORT INFORMATION
  Report Type: 
  Country: None (occurrence: None)
  Receive Date: 20080601
  Receipt Date: 20080218
  Transmission Date: 20081010
  Serious: No
  Sender: FDA-Public Use
  Company Number: US200802004280

PATIENT
  Age: 64 Year
  Sex: Female
  Weight: 99.3 kg

DRUGS (15)
  1. BYETTA [Suspect]
     Indication: TYPE 2 DIABETES MELLITUS
     Dosage: 5 UG, 2/D, SUBCUTANEOUS ; 10 UG, 2/D, SUBCUTANEOUS
     Route: 058
     Dates: start: 20070801, end: 20071001
  2. BYETTA [Suspect]
     Indication: TYPE 2 DIABETES MELLITUS
     Dosage: 5 UG, 2/D, SUBCUTANEOUS ; 10 UG, 2/D, SUBCUTANEOUS
     Route: 058
     Dates: start: 20071001
  3. GLUCOPHAGE [Concomitant]
  4. CLARITIN [Concomitant]
  5. ATENOLOL [Concomitant]
  6. CELEBREX [Concomitant]
  7. TRICOR [Concomitant]
  8. NEXIUM [Concomitant]
  9. SINGULAIR [Concomitant]
  10. SIMVASTATIN [Concomitant]
  11. QUINAPRIL HCL [Concomitant]
  12. ALLOPURINOL [Concomitant]
  13. GLIPIZIDE (GLIPIZDE) [Concomitant]
  14. VITAMIN B12 [Concomitant]
  15. MUCINEX [Concomitant]

REACTIONS (3)
  - ARTHRALGIA [None]
  - NAUSEA [None]
  - SINUSITIS [None]
